FAERS Safety Report 8597284-5 (Version None)
Quarter: 2012Q3

REPORT INFORMATION
  Report Type: 
  Country: None (occurrence: None)
  Receive Date: 20120816
  Receipt Date: 20120810
  Transmission Date: 20120928
  Serious: No
  Sender: FDA-Public Use
  Company Number: US-BIOGENIDEC-2012BI030878

PATIENT
  Age: 63 Year
  Sex: Female

DRUGS (2)
  1. INTERFERON BETA-1A [Suspect]
     Indication: MULTIPLE SCLEROSIS
     Route: 030
     Dates: start: 20111115, end: 20120115
  2. INTERFERON BETA-1A [Suspect]
     Route: 030
     Dates: start: 20120212

REACTIONS (2)
  - PARAESTHESIA [None]
  - COUGH [None]
